FAERS Safety Report 7484986-7 (Version None)
Quarter: 2011Q2

REPORT INFORMATION
  Report Type: 
  Country: None (occurrence: None)
  Receive Date: 20110517
  Receipt Date: 20110502
  Transmission Date: 20111010
  Serious: No
  Sender: FDA-Public Use
  Company Number: US-B.I. PHARMACEUTICALS,INC./RIDGEFIELD-2011-BP-12330BP

PATIENT
  Sex: Female

DRUGS (8)
  1. REMERON [Concomitant]
     Indication: INSOMNIA
     Dates: start: 20060101
  2. SPIRIVA [Suspect]
     Indication: CHRONIC OBSTRUCTIVE PULMONARY DISEASE
     Dosage: 18 MCG
     Route: 055
     Dates: start: 20080101
  3. METOPROLOL SUCCINATE [Concomitant]
     Indication: RHYTHM IDIOVENTRICULAR
     Dates: start: 20050101
  4. PREDNISONE TAB [Concomitant]
     Indication: CHRONIC OBSTRUCTIVE PULMONARY DISEASE
     Dates: start: 20110101
  5. SYNTHROID [Concomitant]
     Indication: HYPOTHYROIDISM
     Dates: start: 19900101
  6. ESTRADIOL [Concomitant]
     Indication: MENOPAUSE
     Dates: start: 20050101
  7. LYRICA [Concomitant]
     Indication: FIBROMYALGIA
     Dates: start: 19980101
  8. DICLOFENAC SODIUM [Concomitant]
     Indication: FIBROMYALGIA
     Dates: start: 20040101

REACTIONS (2)
  - DYSPNOEA [None]
  - SPUTUM DECREASED [None]
